FAERS Safety Report 12219388 (Version 2)
Quarter: 2016Q2

REPORT INFORMATION
  Report Type: Report from Study
  Country: US (occurrence: US)
  Receive Date: 20160329
  Receipt Date: 20160406
  Transmission Date: 20160815
  Serious: Yes (Hospitalization, Other)
  Sender: FDA-Public Use
  Company Number: US-GILEAD-2016-0204716

PATIENT
  Age: 70 Year
  Sex: Female

DRUGS (1)
  1. IDELALISIB [Suspect]
     Active Substance: IDELALISIB
     Indication: B-CELL LYMPHOMA
     Dosage: 150 MG, BID
     Route: 048
     Dates: start: 20151221

REACTIONS (6)
  - Fall [Unknown]
  - Fatigue [Unknown]
  - Transfusion [Unknown]
  - Ureteral stent insertion [Unknown]
  - Pyrexia [Unknown]
  - Laceration [Unknown]

NARRATIVE: CASE EVENT DATE: 201603
